FAERS Safety Report 10872120 (Version 1)
Quarter: 2015Q1

REPORT INFORMATION
  Report Type: Spontaneous
  Country: US (occurrence: None)
  Receive Date: 20150223
  Receipt Date: 20150223
  Transmission Date: 20150721
  Serious: No
  Sender: FDA-Public Use
  Company Number: None

PATIENT
  Age: 68 Year
  Sex: Female
  Weight: 83.46 kg

DRUGS (5)
  1. NAFTIN [Suspect]
     Active Substance: NAFTIFINE HYDROCHLORIDE
     Indication: TINEA PEDIS
     Dosage: APPLY TO AFFECTED AREA + 1/2^ ONCE DAILY APPLIED TO A SURFACE, USUALLY THE SKIN
     Route: 061
     Dates: start: 20150123, end: 20150129
  2. ZYRTEC [Concomitant]
     Active Substance: CETIRIZINE HYDROCHLORIDE
  3. SUDAPHED 12-HR [Concomitant]
  4. GLUCOSAMINE/CHONDRIOTIN [Concomitant]
  5. NEXIUM [Concomitant]
     Active Substance: ESOMEPRAZOLE MAGNESIUM

REACTIONS (5)
  - Blister [None]
  - Skin discolouration [None]
  - Local swelling [None]
  - Pruritus [None]
  - Wound secretion [None]

NARRATIVE: CASE EVENT DATE: 20150123
